FAERS Safety Report 8359961-0 (Version None)
Quarter: 2012Q2

REPORT INFORMATION
  Report Type: 
  Country: None (occurrence: None)
  Receive Date: 20120515
  Receipt Date: 20120504
  Transmission Date: 20120825
  Serious: Yes (Other)
  Sender: FDA-Public Use
  Company Number: US-JNJFOC-20120306127

PATIENT
  Sex: Female
  Weight: 77.11 kg

DRUGS (9)
  1. CELEBREX [Concomitant]
     Indication: ARTHRITIS
     Route: 048
     Dates: start: 20100101
  2. DOXEPIN [Concomitant]
     Indication: SLEEP DISORDER
     Route: 048
     Dates: start: 20110101
  3. VENTOLIN [Concomitant]
     Indication: ASTHMA
     Route: 055
     Dates: start: 20120101
  4. REMICADE [Suspect]
     Indication: RHEUMATOID ARTHRITIS
     Route: 042
     Dates: start: 20111101
  5. PLAVIX [Concomitant]
     Indication: CEREBROVASCULAR ACCIDENT
     Route: 048
     Dates: start: 20030101
  6. AZELASTINE HCL [Concomitant]
     Indication: ASTHMA
     Route: 045
     Dates: start: 20120101
  7. DEXILANT [Concomitant]
     Indication: GASTROOESOPHAGEAL REFLUX DISEASE
     Route: 048
     Dates: start: 20090101
  8. ADVAIR DISKUS 100/50 [Concomitant]
     Indication: ASTHMA
     Route: 055
     Dates: start: 20100101
  9. IMITREX [Concomitant]
     Indication: MIGRAINE
     Route: 048
     Dates: start: 20000101

REACTIONS (3)
  - HYPOKINESIA [None]
  - MALAISE [None]
  - FIBROMYALGIA [None]
